FAERS Safety Report 24451627 (Version 1)
Quarter: 2024Q4

REPORT INFORMATION
  Report Type: Spontaneous
  Country: US (occurrence: US)
  Receive Date: 20241017
  Receipt Date: 20241017
  Transmission Date: 20250115
  Serious: Yes (Other)
  Sender: PFIZER
  Company Number: US-PFIZER INC-PV202400133604

PATIENT
  Age: 72 Year
  Sex: Female

DRUGS (7)
  1. AZITHROMYCIN [Suspect]
     Active Substance: AZITHROMYCIN
     Dosage: UNK
     Dates: end: 20240930
  2. LINEZOLID [Suspect]
     Active Substance: LINEZOLID
     Dosage: UNK
     Dates: end: 20240930
  3. AMIKACIN [Suspect]
     Active Substance: AMIKACIN
     Dosage: UNK
  4. AMIKACIN [Suspect]
     Active Substance: AMIKACIN
     Dosage: UNK, ALTERNATE DAY
     Dates: start: 20240912, end: 20240919
  5. AMIKACIN [Suspect]
     Active Substance: AMIKACIN
     Dosage: UNK, ALTERNATE DAY
     Dates: start: 20240925, end: 20240927
  6. AMIKACIN [Suspect]
     Active Substance: AMIKACIN
     Dosage: UNK
     Dates: end: 20240930
  7. CLOFAZIMINE [Suspect]
     Active Substance: CLOFAZIMINE
     Dosage: UNK
     Dates: end: 20240930

REACTIONS (4)
  - Cytopenia [Unknown]
  - Dysphonia [Unknown]
  - Fatigue [Not Recovered/Not Resolved]
  - Dizziness [Unknown]

NARRATIVE: CASE EVENT DATE: 20240912
